FAERS Safety Report 9387141 (Version 1)
Quarter: 2013Q3

REPORT INFORMATION
  Report Type: Spontaneous
  Country: US (occurrence: US)
  Receive Date: 20130708
  Receipt Date: 20130708
  Transmission Date: 20140515
  Serious: No
  Sender: FDA-Public Use
  Company Number: US-ASTRAZENECA-2013SE42269

PATIENT
  Age: 70 Year
  Sex: Female

DRUGS (3)
  1. SYMBICORT [Suspect]
     Indication: CARDIAC DISORDER
     Dosage: 160/4.5 TWO PUFFS TWICE A DAY
     Route: 055
  2. SYMBICORT [Suspect]
     Indication: CARDIAC DISORDER
     Dosage: 160/4.5  4 PER DAY
     Route: 055
  3. SYMBICORT [Suspect]
     Indication: CARDIAC DISORDER
     Dosage: 80/ 4.5 UNKNOWN
     Route: 055

REACTIONS (2)
  - Throat irritation [Unknown]
  - Intentional drug misuse [Unknown]
